FAERS Safety Report 7283117-6 (Version None)
Quarter: 2011Q1

REPORT INFORMATION
  Report Type: 
  Country: None (occurrence: None)
  Receive Date: 20110209
  Receipt Date: 20100728
  Transmission Date: 20110831
  Serious: No
  Sender: FDA-Public Use
  Company Number: A0872751A

PATIENT
  Age: 57 Year
  Sex: Female

DRUGS (5)
  1. TOPROL-XL [Concomitant]
  2. ASPIRIN [Concomitant]
  3. TRAMADOL HCL [Concomitant]
  4. PREVACID [Concomitant]
  5. PAXIL [Suspect]
     Indication: FIBROMYALGIA
     Dosage: 25MG IN THE MORNING
     Route: 048

REACTIONS (2)
  - FAECES DISCOLOURED [None]
  - DIARRHOEA [None]
